FAERS Safety Report 5273262-9 (Version None)
Quarter: 2007Q1

REPORT INFORMATION
  Report Type: 
  Country: None (occurrence: None)
  Receive Date: 20070319
  Receipt Date: 20070305
  Transmission Date: 20070707
  Serious: Yes (Death)
  Sender: FDA-Public Use
  Company Number: B0461459A

PATIENT
  Age: 12 Year
  Sex: Female
  Weight: 19.9583 kg

DRUGS (4)
  1. LANOXIN [Suspect]
     Indication: CARDIAC FAILURE CONGESTIVE
     Dosage: 10 MCG/KG / PER DAY / UNKNOWN
  2. LEVOTHYROXINE SODIUM [Concomitant]
  3. FRUSEMIDE [Concomitant]
  4. CAPTOPRIL [Concomitant]

REACTIONS (6)
  - CARDIAC ARREST [None]
  - NAUSEA [None]
  - THERAPEUTIC AGENT TOXICITY [None]
  - VENTRICULAR EXTRASYSTOLES [None]
  - VENTRICULAR FIBRILLATION [None]
  - VOMITING [None]
